FAERS Safety Report 25458945 (Version 2)
Quarter: 2025Q2

REPORT INFORMATION
  Report Type: Spontaneous
  Country: SE (occurrence: SE)
  Receive Date: 20250620
  Receipt Date: 20250627
  Transmission Date: 20250716
  Serious: Yes (Other)
  Sender: TEVA
  Company Number: SE-TEVA-VS-3342324

PATIENT
  Age: 80 Year
  Sex: Female

DRUGS (2)
  1. METOPROLOL [Suspect]
     Active Substance: METOPROLOL
     Indication: Hypertension
     Route: 048
     Dates: start: 20250609
  2. LOSARTAN [Concomitant]
     Active Substance: LOSARTAN
     Indication: Hypertension

REACTIONS (8)
  - Hypertension [Recovered/Resolved]
  - Tinnitus [Unknown]
  - Incorrect dose administered [Unknown]
  - Foreign body in throat [Unknown]
  - Product solubility abnormal [Unknown]
  - Somnolence [Unknown]
  - Product size issue [Unknown]
  - Product use complaint [Unknown]

NARRATIVE: CASE EVENT DATE: 20250601
